FAERS Safety Report 9886610 (Version 3)
Quarter: 2014Q1

REPORT INFORMATION
  Report Type: Report from Study
  Country: US (occurrence: US)
  Receive Date: 20140210
  Receipt Date: 20140227
  Transmission Date: 20141002
  Serious: Yes (Hospitalization)
  Sender: FDA-Public Use
  Company Number: US-EXELIXIS-XL18414003984

PATIENT
  Age: 51 Year
  Sex: Male
  Weight: 99.79 kg

DRUGS (15)
  1. XL184 [Suspect]
     Indication: PROSTATE CANCER
     Dosage: 60 MG, QD
     Route: 048
     Dates: start: 20130819, end: 20140129
  2. XL184 [Suspect]
     Indication: PROSTATE CANCER
     Dosage: 5 MG, BID
     Route: 048
     Dates: start: 20130819, end: 20140130
  3. DOCUSATE SODIUM [Concomitant]
  4. PREDNISONE [Concomitant]
  5. SENNA [Concomitant]
  6. TAMSULOSIN HCL [Concomitant]
  7. ONDANSETRON [Concomitant]
  8. VITAMIN C [Concomitant]
  9. LORAZEPAM [Concomitant]
  10. MORPHINE [Concomitant]
  11. BUPIVACAINE [Concomitant]
  12. TYLENOL [Concomitant]
  13. ZOMETA [Concomitant]
  14. UREA [Concomitant]
  15. NEURONTIN [Concomitant]

REACTIONS (1)
  - Cellulitis [Recovered/Resolved with Sequelae]
